FAERS Safety Report 5402993-2 (Version None)
Quarter: 2007Q3

REPORT INFORMATION
  Report Type: 
  Country: None (occurrence: None)
  Receive Date: 20070713
  Receipt Date: 20060601
  Transmission Date: 20080115
  Serious: Yes (Hospitalization)
  Sender: FDA-Public Use
  Company Number: 450253

PATIENT
  Age: 89 Year
  Sex: Female
  Weight: 56.7 kg

DRUGS (8)
  1. BONIVA [Suspect]
     Indication: OSTEOPOROSIS
     Dosage: 150 MG 1 PER MONTH ORAL
     Route: 048
     Dates: start: 20060113, end: 20060313
  2. PROTONIX [Concomitant]
  3. ASPIRIN [Concomitant]
  4. PREDNISONE TAB [Concomitant]
  5. 1 CONCOMITANT DRUG (GENERIC UNKNOWN) [Concomitant]
  6. LASIX [Concomitant]
  7. BENZONATATE [Concomitant]
  8. LIPITOR [Concomitant]

REACTIONS (2)
  - GASTROOESOPHAGEAL REFLUX DISEASE [None]
  - INFECTION [None]
